FAERS Safety Report 22383552 (Version 1)
Quarter: 2023Q2

REPORT INFORMATION
  Report Type: Spontaneous
  Country: JP (occurrence: JP)
  Receive Date: 20230530
  Receipt Date: 20230530
  Transmission Date: 20230722
  Serious: Yes (Death, Other)
  Sender: FDA-Public Use
  Company Number: JP-OTSUKA-2023_011126

PATIENT
  Age: 101 Year
  Weight: 36 kg

DRUGS (2)
  1. SAMSCA [Suspect]
     Active Substance: TOLVAPTAN
     Indication: Fluid retention
     Dosage: 3.75 MG/DAY
     Route: 065
  2. SAMSCA [Suspect]
     Active Substance: TOLVAPTAN
     Indication: Cardiac failure

REACTIONS (4)
  - Death [Fatal]
  - General physical health deterioration [Unknown]
  - Wheezing [Unknown]
  - Underdose [Unknown]

NARRATIVE: CASE EVENT DATE: 20230504
